FAERS Safety Report 15423790 (Version 1)
Quarter: 2018Q3

REPORT INFORMATION
  Report Type: Spontaneous
  Country: US (occurrence: US)
  Receive Date: 20180924
  Receipt Date: 20180924
  Transmission Date: 20181010
  Serious: Yes (Other)
  Sender: FDA-Public Use
  Company Number: None

PATIENT
  Sex: Male
  Weight: 92.99 kg

DRUGS (2)
  1. CARVEDILOL 25 MG [Suspect]
     Active Substance: CARVEDILOL
     Indication: HYPERTENSION
     Route: 048
  2. COREG [Suspect]
     Active Substance: CARVEDILOL

REACTIONS (4)
  - Dizziness [None]
  - Cough [None]
  - Arthralgia [None]
  - Product substitution issue [None]
